FAERS Safety Report 8106004 (Version 2)
Quarter: 2013Q4

REPORT INFORMATION
  Report Type: Spontaneous
  Country: US (occurrence: US)
  Receive Date: 20110825
  Receipt Date: 20131202
  Transmission Date: 20140711
  Serious: Yes (Other)
  Sender: FDA-Public Use
  Company Number: US-BAYER-2011-075553

PATIENT
  Age: 31 Year
  Sex: Female

DRUGS (5)
  1. YAZ [Suspect]
     Dosage: UNK
  2. YASMIN [Suspect]
     Dosage: UNK
  3. FAMOTIDINE [Concomitant]
     Dosage: 20 MG, UNK
  4. ALBUTEROL [Concomitant]
     Dosage: UNK, AS NEEDED
  5. PHENTERMINE [Concomitant]
     Dosage: UNK

REACTIONS (2)
  - Gallbladder injury [None]
  - Cholecystitis chronic [None]
